FAERS Safety Report 6453011-9 (Version None)
Quarter: 2009Q4

REPORT INFORMATION
  Report Type: 
  Country: None (occurrence: None)
  Receive Date: 20091124
  Receipt Date: 20091005
  Transmission Date: 20100525
  Serious: No
  Sender: FDA-Public Use
  Company Number: US-ABBOTT-09P-163-0601691-00

PATIENT
  Sex: Male
  Weight: 83.99 kg

DRUGS (9)
  1. TRICOR [Suspect]
     Indication: BLOOD TRIGLYCERIDES INCREASED
     Route: 048
     Dates: start: 20090601, end: 20090901
  2. TRICOR [Suspect]
     Route: 048
  3. METFORMIN HCL [Concomitant]
     Indication: TYPE 2 DIABETES MELLITUS
     Route: 048
  4. LOVASTATIN [Concomitant]
     Indication: BLOOD CHOLESTEROL INCREASED
  5. AVANDIA [Concomitant]
     Indication: TYPE 2 DIABETES MELLITUS
  6. SULFASALEZIME [Concomitant]
     Indication: COLITIS ULCERATIVE
     Route: 048
  7. MULTI-VITAMIN [Concomitant]
     Indication: MEDICAL DIET
     Route: 048
  8. ECHINACEA [Concomitant]
     Indication: DRUG USE FOR UNKNOWN INDICATION
  9. ZINC [Concomitant]
     Indication: DRUG USE FOR UNKNOWN INDICATION

REACTIONS (1)
  - ACNE [None]
